FAERS Safety Report 12204697 (Version 2)
Quarter: 2016Q2

REPORT INFORMATION
  Report Type: Spontaneous
  Country: DE (occurrence: DE)
  Receive Date: 20160323
  Receipt Date: 20160418
  Transmission Date: 20160815
  Serious: Yes (Other)
  Sender: FDA-Public Use
  Company Number: DE-BRISTOL-MYERS SQUIBB COMPANY-BMS-2016-021382

PATIENT
  Age: 89 Year
  Sex: Female
  Weight: 70 kg

DRUGS (5)
  1. ALLOPURINOL. [Concomitant]
     Active Substance: ALLOPURINOL
     Indication: GOUT
     Route: 065
  2. ELIQUIS [Suspect]
     Active Substance: APIXABAN
     Indication: CEREBROVASCULAR ACCIDENT PROPHYLAXIS
     Dosage: 2.5 MG, BID
     Route: 048
     Dates: start: 20160121
  3. DIHYDROTACHYSTEROL [Concomitant]
     Active Substance: DIHYDROTACHYSTEROL
     Indication: THYROID DISORDER
     Route: 065
  4. BERLTHYROX [Concomitant]
     Indication: THYROID DISORDER
     Route: 065
  5. NEBIVOLOL. [Concomitant]
     Active Substance: NEBIVOLOL
     Indication: ATRIAL FIBRILLATION
     Route: 065

REACTIONS (3)
  - Mucosal haemorrhage [Unknown]
  - Atrial fibrillation [Unknown]
  - Gingival bleeding [Recovered/Resolved]

NARRATIVE: CASE EVENT DATE: 20160228
